FAERS Safety Report 7054043-2 (Version None)
Quarter: 2010Q4

REPORT INFORMATION
  Report Type: 
  Country: None (occurrence: None)
  Receive Date: 20101020
  Receipt Date: 20101018
  Transmission Date: 20110411
  Serious: Yes (Hospitalization, Other)
  Sender: FDA-Public Use
  Company Number: GB-BRISTOL-MYERS SQUIBB COMPANY-15316144

PATIENT
  Age: 30 Year
  Sex: Female

DRUGS (7)
  1. ABILIFY [Suspect]
     Indication: PSYCHOTIC DISORDER
     Dosage: ALSO TAKEN FOR 2 YEARS.
     Route: 048
     Dates: start: 20100928
  2. ABILIFY [Suspect]
     Indication: MANIA
     Dosage: ALSO TAKEN FOR 2 YEARS.
     Route: 048
     Dates: start: 20100928
  3. HALOPERIDOL [Concomitant]
  4. CILEST [Concomitant]
     Dosage: 1DF=1TABLET (250MCG+35MCG)
     Route: 048
  5. FERROUS SULFATE + FOLIC ACID [Concomitant]
     Indication: ANAEMIA
     Dosage: 1DF=325MG +320MG
     Route: 048
  6. LACTULOSE [Concomitant]
     Indication: CONSTIPATION
     Route: 048
     Dates: start: 20101013
  7. ZOPICLONE [Concomitant]
     Indication: INSOMNIA
     Route: 048
     Dates: start: 20100930

REACTIONS (1)
  - PSYCHOTIC DISORDER [None]
